FAERS Safety Report 9345578 (Version 1)
Quarter: 2013Q2

REPORT INFORMATION
  Report Type: Spontaneous
  Country: DK (occurrence: DK)
  Receive Date: 20130613
  Receipt Date: 20130613
  Transmission Date: 20140414
  Serious: Yes (Other)
  Sender: FDA-Public Use
  Company Number: DK-AMGEN-DNKSP2013041249

PATIENT
  Age: 62 Year
  Sex: Female

DRUGS (4)
  1. NEULASTA [Suspect]
     Indication: PRODUCT USED FOR UNKNOWN INDICATION
     Dosage: 6 MG, UNK
     Route: 058
     Dates: start: 20130125
  2. HERCEPTIN [Suspect]
     Indication: BREAST CANCER
     Dosage: 567 MG, ONCE EVERY 3 WEEKS
     Route: 042
     Dates: start: 20130124
  3. TAXOL [Suspect]
     Indication: BREAST CANCER
     Dosage: UNK, ONCE EVERY WEEK
     Route: 042
  4. DOCETAXEL [Suspect]
     Indication: BREAST CANCER
     Dosage: 132 MG, ONCE EVERY 3 WEEKS
     Route: 042
     Dates: start: 20130125, end: 20130125

REACTIONS (3)
  - Angioedema [Recovered/Resolved]
  - Swelling face [Recovered/Resolved]
  - Swelling [Recovered/Resolved]
